FAERS Safety Report 7296082-2 (Version None)
Quarter: 2011Q1

REPORT INFORMATION
  Report Type: 
  Country: None (occurrence: None)
  Receive Date: 20110216
  Receipt Date: 20110208
  Transmission Date: 20110831
  Serious: Yes (Death, Life-Threatening, Other)
  Sender: FDA-Public Use
  Company Number: US-ELI_LILLY_AND_COMPANY-US201102002717

PATIENT
  Age: 63 Year
  Sex: Female

DRUGS (5)
  1. DEXAMETHASONE [Concomitant]
     Dosage: 4 MG, 2/D
  2. MOTEXAFIN GADOLINIUM [Concomitant]
     Indication: NON-SMALL CELL LUNG CANCER
     Dosage: 15 MG/KG, UNK
     Route: 042
  3. VITAMIN B-12 [Concomitant]
     Dosage: 1 MG, UNK
  4. PEMETREXED [Suspect]
     Indication: NON-SMALL CELL LUNG CANCER
     Dosage: 500 MG/M2, UNK
     Route: 042
  5. FOLIC ACID [Concomitant]
     Dosage: 400 UG, DAILY (1/D)

REACTIONS (3)
  - PNEUMONIA [None]
  - NEUTROPENIC SEPSIS [None]
  - CARDIOGENIC SHOCK [None]
